FAERS Safety Report 5403554-1 (Version None)
Quarter: 2007Q3

REPORT INFORMATION
  Report Type: 
  Country: None (occurrence: None)
  Receive Date: 20070730
  Receipt Date: 20070719
  Transmission Date: 20080115
  Serious: Yes (Hospitalization)
  Sender: FDA-Public Use
  Company Number: GXKR2007DE06170

PATIENT
  Age: 32 Year
  Sex: Female

DRUGS (4)
  1. CEFUROXIME [Suspect]
     Dosage: INTRAVENOUS
     Route: 042
  2. MORPHINE [Concomitant]
  3. OMEPRAZOLE [Concomitant]
  4. AMITRIPTYLINE HCL [Concomitant]

REACTIONS (4)
  - ABSCESS [None]
  - CONDITION AGGRAVATED [None]
  - DRUG INEFFECTIVE [None]
  - PHARMACEUTICAL PRODUCT COMPLAINT [None]
